FAERS Safety Report 13038222 (Version 5)
Quarter: 2017Q1

REPORT INFORMATION
  Report Type: Spontaneous
  Country: BE (occurrence: BE)
  Receive Date: 20161219
  Receipt Date: 20170213
  Transmission Date: 20170428
  Serious: Yes (Death, Hospitalization, Other)
  Sender: FDA-Public Use
  Company Number: BE-BRISTOL-MYERS SQUIBB COMPANY-BMS-2016-106383

PATIENT
  Age: 63 Year
  Sex: Male

DRUGS (10)
  1. EXFORGE [Concomitant]
     Active Substance: AMLODIPINE BESYLATE\VALSARTAN
     Indication: HYPERTENSION
     Route: 048
  2. DAFALGAN [Concomitant]
     Active Substance: ACETAMINOPHEN
     Indication: PAIN
     Route: 048
  3. ASAFLOW [Concomitant]
     Active Substance: ASPIRIN
     Indication: PROPHYLAXIS
     Dosage: 80 MG, UNK
     Route: 048
  4. FELDENE [Concomitant]
     Active Substance: PIROXICAM
     Indication: TENDONITIS
     Dosage: UNK
     Route: 048
     Dates: start: 20160922, end: 20160922
  5. TEMESTA                            /00273201/ [Concomitant]
     Active Substance: LORAZEPAM
     Indication: INSOMNIA
     Dosage: UNK
     Route: 048
     Dates: start: 201409
  6. VALTRAN                            /00628301/ [Concomitant]
     Indication: PRODUCT USED FOR UNKNOWN INDICATION
     Route: 048
  7. ALLOPURINOL. [Concomitant]
     Active Substance: ALLOPURINOL
     Indication: PROPHYLAXIS
     Dosage: 100 MG, UNK
     Route: 048
  8. CARVEDILOL. [Concomitant]
     Active Substance: CARVEDILOL
     Indication: HYPERTENSION
     Dosage: 25 MG, UNK
     Route: 065
  9. DEXAMETHASONE. [Concomitant]
     Active Substance: DEXAMETHASONE
     Indication: PROPHYLAXIS
     Dosage: UNK
     Route: 048
     Dates: start: 20160808
  10. OPDIVO [Suspect]
     Active Substance: NIVOLUMAB
     Indication: MALIGNANT MELANOMA
     Dosage: 1 MG/KG, Q2WK
     Route: 042
     Dates: start: 20160617, end: 20161129

REACTIONS (9)
  - Pharyngitis [Unknown]
  - Hyperuricaemia [Unknown]
  - Febrile neutropenia [Unknown]
  - Ulcerative gastritis [Unknown]
  - Agranulocytosis [Recovering/Resolving]
  - Death [Fatal]
  - Oedema peripheral [Recovering/Resolving]
  - Fungal oesophagitis [Unknown]
  - Pharyngeal haemorrhage [Unknown]

NARRATIVE: CASE EVENT DATE: 20161208
